FAERS Safety Report 19835307 (Version 1)
Quarter: 2021Q3

REPORT INFORMATION
  Report Type: Spontaneous
  Country: GB (occurrence: GB)
  Receive Date: 20210916
  Receipt Date: 20210916
  Transmission Date: 20211014
  Serious: Yes (Death, Other)
  Sender: FDA-Public Use
  Company Number: GB-ADVANZ PHARMA-202109006137

PATIENT

DRUGS (1)
  1. PREDNISOLONE. [Suspect]
     Active Substance: PREDNISOLONE
     Dosage: UNK
     Route: 048

REACTIONS (2)
  - Disease progression [Fatal]
  - Interstitial lung disease [Fatal]
